FAERS Safety Report 7912710-X (Version None)
Quarter: 2011Q4

REPORT INFORMATION
  Report Type: 
  Country: None (occurrence: None)
  Receive Date: 20111114
  Receipt Date: 20111031
  Transmission Date: 20120403
  Serious: Yes (Other)
  Sender: FDA-Public Use
  Company Number: DE-PFIZER INC-2011266525

PATIENT
  Age: 30 Year
  Sex: Male
  Weight: 72 kg

DRUGS (4)
  1. RANITIC [Concomitant]
     Indication: ABDOMINAL PAIN
     Dosage: 300 MG, 1X/DAY
     Route: 048
     Dates: start: 20110916
  2. CRIZOTINIB [Suspect]
     Indication: NON-SMALL CELL LUNG CANCER
     Dosage: 250 MG, 2X/DAY
     Route: 048
     Dates: start: 20110228
  3. OXYCODONE HYDROCHLORIDE [Concomitant]
     Indication: TUMOUR PAIN
     Dosage: 10 MG, 2X/DAY
     Route: 048
     Dates: start: 20101014
  4. ADVENTAN [Concomitant]
     Indication: FOLLICULITIS
     Dosage: UNK
     Route: 003
     Dates: start: 20110321

REACTIONS (1)
  - HEPATOTOXICITY [None]
